FAERS Safety Report 7122985-5 (Version None)
Quarter: 2010Q4

REPORT INFORMATION
  Report Type: 
  Country: None (occurrence: None)
  Receive Date: 20101124
  Receipt Date: 20101117
  Transmission Date: 20110411
  Serious: Yes (Hospitalization, Other)
  Sender: FDA-Public Use
  Company Number: JP-PFIZER INC-2010150055

PATIENT
  Age: 73 Year
  Sex: Female

DRUGS (2)
  1. LYRICA [Suspect]
     Indication: POST HERPETIC NEURALGIA
     Dosage: 150 MG, 1X/DAY
     Route: 048
     Dates: start: 20100825, end: 20100927
  2. LOXONIN [Concomitant]
     Dosage: 60 MG, 1X/DAY

REACTIONS (4)
  - FALL [None]
  - FEELING ABNORMAL [None]
  - FEMUR FRACTURE [None]
  - LOSS OF CONSCIOUSNESS [None]
